FAERS Safety Report 24006150 (Version 4)
Quarter: 2024Q3

REPORT INFORMATION
  Report Type: Report from Study
  Country: US (occurrence: US)
  Receive Date: 20240624
  Receipt Date: 20240828
  Transmission Date: 20241017
  Serious: No
  Sender: BIOVITRUM
  Company Number: US-BIOVITRUM-2024-US-008980

PATIENT
  Age: 70 Year
  Sex: Female

DRUGS (2)
  1. KINERET [Suspect]
     Active Substance: ANAKINRA
     Indication: Polyarthritis
     Dosage: DAILY
     Route: 058
     Dates: start: 20240604
  2. KINERET [Suspect]
     Active Substance: ANAKINRA
     Indication: Monoclonal gammopathy

REACTIONS (10)
  - Off label use [Not Recovered/Not Resolved]
  - Injection site rash [Unknown]
  - Injection site erythema [Unknown]
  - Arthropathy [Unknown]
  - Condition aggravated [Unknown]
  - Adverse drug reaction [Unknown]
  - Local reaction [Unknown]
  - Joint swelling [Unknown]
  - Needle issue [Unknown]
  - Product dose omission issue [Unknown]

NARRATIVE: CASE EVENT DATE: 20240604
